FAERS Safety Report 8588631-9 (Version None)
Quarter: 2012Q3

REPORT INFORMATION
  Report Type: 
  Country: None (occurrence: None)
  Receive Date: 20120813
  Receipt Date: 20120806
  Transmission Date: 20120928
  Serious: Yes (Hospitalization, Other)
  Sender: FDA-Public Use
  Company Number: PHHY2012MX069126

PATIENT
  Sex: Female

DRUGS (2)
  1. LANOXIN [Concomitant]
     Indication: CARDIAC DISORDER
     Dosage: 1 DF FROM MONDAY TO FRIDAY
     Dates: start: 19980601
  2. EXFORGE [Suspect]
     Indication: HYPERTENSION
     Dosage: 1 DF (160/5MG) DAILY
     Dates: start: 20090401

REACTIONS (3)
  - GENERAL PHYSICAL HEALTH DETERIORATION [None]
  - DIABETES MELLITUS [None]
  - DIARRHOEA [None]
